FAERS Safety Report 23122856 (Version 1)
Quarter: 2023Q4

REPORT INFORMATION
  Report Type: Report from Study
  Country: MX (occurrence: MX)
  Receive Date: 20231030
  Receipt Date: 20231030
  Transmission Date: 20240110
  Serious: Yes (Other)
  Sender: FDA-Public Use
  Company Number: MX-ABBVIE-5470899

PATIENT
  Age: 59 Year
  Sex: Female
  Weight: 80 kg

DRUGS (1)
  1. UPADACITINIB [Suspect]
     Active Substance: UPADACITINIB
     Indication: Rheumatoid arthritis
     Dosage: FORM STRENGTH: 15 MILLIGRAM
     Route: 048
     Dates: start: 20211211, end: 202307

REACTIONS (4)
  - Hepatic cirrhosis [Unknown]
  - Gastritis [Unknown]
  - Abdominal pain upper [Unknown]
  - Agitation [Unknown]

NARRATIVE: CASE EVENT DATE: 20230701
